FAERS Safety Report 7974682-1 (Version None)
Quarter: 2011Q4

REPORT INFORMATION
  Report Type: 
  Country: None (occurrence: None)
  Receive Date: 20111213
  Receipt Date: 20111202
  Transmission Date: 20120403
  Serious: Yes (Other)
  Sender: FDA-Public Use
  Company Number: PHEH2011US010755

PATIENT
  Sex: Female

DRUGS (1)
  1. TEKTURNA [Suspect]
     Dosage: UNK

REACTIONS (2)
  - MYOCARDIAL INFARCTION [None]
  - CEREBROVASCULAR ACCIDENT [None]
